FAERS Safety Report 26111840 (Version 1)
Quarter: 2025Q4

REPORT INFORMATION
  Report Type: Spontaneous
  Country: EU (occurrence: EU)
  Receive Date: 20251202
  Receipt Date: 20251202
  Transmission Date: 20260117
  Serious: Yes (Other)
  Sender: REGENERON
  Company Number: EU-BAYER-2025A156494

PATIENT

DRUGS (1)
  1. EYLEA HD [Suspect]
     Active Substance: AFLIBERCEPT
     Indication: Neovascular age-related macular degeneration
     Dosage: 8 MG, 114.3 MG/ML
     Route: 031

REACTIONS (2)
  - Eye haemorrhage [Unknown]
  - Blindness [Unknown]
